FAERS Safety Report 9690433 (Version 3)
Quarter: 2013Q4

REPORT INFORMATION
  Report Type: Report from Study
  Country: FR (occurrence: FR)
  Receive Date: 20131115
  Receipt Date: 20131219
  Transmission Date: 20140711
  Serious: Yes (Death, Hospitalization)
  Sender: FDA-Public Use
  Company Number: FR-B.I. PHARMACEUTICALS,INC./RIDGEFIELD-2013-BI-28360BI

PATIENT
  Age: 84 Year
  Sex: Female
  Weight: 35.9 kg

DRUGS (9)
  1. PRADAXA [Suspect]
     Indication: ATRIAL FIBRILLATION
     Dosage: 220 MG
     Route: 048
     Dates: start: 20130826, end: 20130905
  2. LASIX 40 MG [Concomitant]
     Dosage: FORMULATION : SCORED TABLET
  3. TILDIEM [Concomitant]
  4. PERINDOPRIL [Concomitant]
  5. TAHOR [Concomitant]
  6. CORTANCYL [Concomitant]
  7. DIFFU-K [Concomitant]
  8. TOPALGIC [Concomitant]
  9. STILNOX [Concomitant]

REACTIONS (3)
  - Death [Fatal]
  - Rectal haemorrhage [Recovered/Resolved]
  - Diarrhoea [Recovered/Resolved]
